FAERS Safety Report 20024423 (Version 1)
Quarter: 2021Q4

REPORT INFORMATION
  Report Type: Spontaneous
  Country: US (occurrence: US)
  Receive Date: 20211102
  Receipt Date: 20211102
  Transmission Date: 20220304
  Serious: Yes (Other)
  Sender: FDA-Public Use
  Company Number: US-GLAXOSMITHKLINE-US2021GSK226088

PATIENT
  Sex: Female

DRUGS (4)
  1. ZANTAC [Suspect]
     Active Substance: RANITIDINE HYDROCHLORIDE
     Indication: Gastrointestinal haemorrhage
     Dosage: UNK UNK, QD
     Dates: start: 199101, end: 202008
  2. ZANTAC [Suspect]
     Active Substance: RANITIDINE HYDROCHLORIDE
     Indication: Gastrointestinal haemorrhage
     Dosage: UNK UNK, QD
     Dates: start: 199101, end: 202008
  3. RANITIDINE [Suspect]
     Active Substance: RANITIDINE
     Indication: Gastrointestinal haemorrhage
     Dosage: UNK, QD
     Dates: start: 199101, end: 202008
  4. RANITIDINE [Suspect]
     Active Substance: RANITIDINE
     Indication: Gastrointestinal haemorrhage
     Dosage: UNK, QD
     Dates: start: 199101, end: 202008

REACTIONS (1)
  - Breast cancer [Unknown]
